FAERS Safety Report 8779511 (Version 1)
Quarter: 2012Q4

REPORT INFORMATION
  Report Type: Report from Study
  Country: CA (occurrence: CA)
  Receive Date: 20120912
  Receipt Date: 20120912
  Transmission Date: 20130627
  Serious: Yes (Hospitalization)
  Sender: FDA-Public Use
  Company Number: CA-ROCHE-1082425

PATIENT
  Age: 63 Year
  Sex: Male
  Weight: 82.3 kg

DRUGS (16)
  1. SERAX (CANADA) [Concomitant]
     Route: 065
     Dates: start: 20120427, end: 20120427
  2. HUMALOG [Concomitant]
     Dosage: 6 TOTAL CUMULATIVE DOSE UNIT.
     Route: 065
     Dates: start: 20120427, end: 20120427
  3. GRAVOL [Concomitant]
     Route: 065
     Dates: start: 20120428, end: 20120428
  4. CRESTOR [Concomitant]
     Route: 065
     Dates: start: 20120427, end: 20120429
  5. CRESTOR [Concomitant]
     Route: 065
     Dates: start: 20111025, end: 20120426
  6. CRESTOR [Concomitant]
     Route: 065
     Dates: start: 20120430
  7. LASIX [Concomitant]
     Route: 065
     Dates: start: 20120426, end: 20120426
  8. MONOCOR [Concomitant]
     Route: 065
     Dates: start: 20120429
  9. MONOCOR [Concomitant]
     Route: 065
     Dates: start: 20120428, end: 20120428
  10. VERSED [Concomitant]
     Route: 065
     Dates: start: 20120426, end: 20120426
  11. ASPIRIN [Concomitant]
     Route: 065
     Dates: start: 20111025, end: 20120426
  12. ASPIRIN [Concomitant]
     Route: 065
     Dates: start: 20120430
  13. APO-BISOPROLOL [Concomitant]
     Route: 065
     Dates: start: 20111118, end: 20120426
  14. PANTOLOC [Concomitant]
     Route: 065
     Dates: start: 20120426, end: 20120426
  15. ATIVAN [Concomitant]
     Route: 065
     Dates: start: 20120425, end: 20120425
  16. PLACEBO [Suspect]
     Indication: CORONARY ARTERY BYPASS
     Dosage: last dose prior to SAE: 26/Apr/2012
     Route: 042
     Dates: start: 20120426

REACTIONS (1)
  - Atrial fibrillation [Recovered/Resolved]
